FAERS Safety Report 13749435 (Version 1)
Quarter: 2017Q3

REPORT INFORMATION
  Report Type: Report from Study
  Country: BR (occurrence: BR)
  Receive Date: 20170713
  Receipt Date: 20170713
  Transmission Date: 20171127
  Serious: Yes (Hospitalization)
  Sender: FDA-Public Use
  Company Number: BR-BIOGEN-2017BI00402659

PATIENT
  Age: 51 Year
  Sex: Female

DRUGS (1)
  1. TECFIDERA [Suspect]
     Active Substance: DIMETHYL FUMARATE
     Indication: MULTIPLE SCLEROSIS
     Dosage: MAINTENANCE DOSE
     Route: 048
     Dates: start: 20170508, end: 20170528

REACTIONS (11)
  - Fall [Recovered/Resolved]
  - Nausea [Not Recovered/Not Resolved]
  - Head injury [Recovered/Resolved]
  - Urinary tract infection [Not Recovered/Not Resolved]
  - Abdominal discomfort [Unknown]
  - Femur fracture [Recovered/Resolved with Sequelae]
  - Pruritus [Unknown]
  - Fibula fracture [Recovered/Resolved with Sequelae]
  - Vulvovaginal rash [Unknown]
  - Erythema [Unknown]
  - Feeling hot [Unknown]

NARRATIVE: CASE EVENT DATE: 20170527
